FAERS Safety Report 4846676-6 (Version None)
Quarter: 2005Q4

REPORT INFORMATION
  Report Type: 
  Country: None (occurrence: None)
  Receive Date: 20051202
  Receipt Date: 20051118
  Transmission Date: 20060501
  Serious: Yes (Other)
  Sender: FDA-Public Use
  Company Number: 12947

PATIENT
  Age: 56 Year
  Sex: Female

DRUGS (6)
  1. CARBOPLATIN [Suspect]
     Indication: OVARIAN CANCER
     Dates: start: 19990601, end: 19990601
  2. CARBOPLATIN [Suspect]
     Indication: PERITONEAL CARCINOMA
     Dates: start: 19990601, end: 19990601
  3. CARBOPLATIN [Suspect]
     Indication: OVARIAN CANCER
     Dates: start: 19991101
  4. CARBOPLATIN [Suspect]
     Indication: PERITONEAL CARCINOMA
     Dates: start: 19991101
  5. DOXORUBICIN [Suspect]
     Indication: OVARIAN CANCER
     Dates: start: 19990601, end: 19990101
  6. ETOPOSIDE [Suspect]
     Indication: OVARIAN CANCER
     Dates: start: 19990601, end: 19990101

REACTIONS (5)
  - FEBRILE NEUTROPENIA [None]
  - MALIGNANT NEOPLASM PROGRESSION [None]
  - OVARIAN CANCER [None]
  - PERITONEAL CARCINOMA [None]
  - PLEURAL EFFUSION [None]
